FAERS Safety Report 9479281 (Version 1)
Quarter: 2013Q3

REPORT INFORMATION
  Report Type: Report from Study
  Country: DE (occurrence: DE)
  Receive Date: 20130827
  Receipt Date: 20130827
  Transmission Date: 20140515
  Serious: Yes (Hospitalization)
  Sender: FDA-Public Use
  Company Number: DE-ROCHE-1266608

PATIENT
  Age: 71 Year
  Sex: Male

DRUGS (2)
  1. RITUXIMAB [Suspect]
     Indication: RHEUMATOID ARTHRITIS
     Dosage: DATE OF LAST DOSE OF RITUXIMAB PRIOR TO SAE AT DOSE WAS 25/FEB/2010 AND  08/FEB/2012
     Route: 065
  2. RITUXIMAB [Suspect]
     Dosage: LAST DOSE WAS ON 25/JAN/2013
     Route: 065

REACTIONS (1)
  - Retinal detachment [Recovered/Resolved]
